FAERS Safety Report 8303196-4 (Version None)
Quarter: 2012Q2

REPORT INFORMATION
  Report Type: 
  Country: None (occurrence: None)
  Receive Date: 20120423
  Receipt Date: 20120412
  Transmission Date: 20120825
  Serious: No
  Sender: FDA-Public Use
  Company Number: US-BIOGENIDEC-2012BI012489

PATIENT
  Sex: Female

DRUGS (2)
  1. TYSABRI [Suspect]
     Indication: MULTIPLE SCLEROSIS
     Route: 042
     Dates: start: 20070803, end: 20070914
  2. TYSABRI [Suspect]
     Route: 042
     Dates: start: 20110715

REACTIONS (4)
  - FOOD ALLERGY [None]
  - REACTION TO FOOD ADDITIVE [None]
  - IMMUNE SYSTEM DISORDER [None]
  - ANAPHYLACTIC REACTION [None]
